FAERS Safety Report 7837688 (Version 3)
Quarter: 2014Q2

REPORT INFORMATION
  Report Type: Spontaneous
  Country: US (occurrence: US)
  Receive Date: 20110302
  Receipt Date: 20131024
  Transmission Date: 20141212
  Serious: Yes (Hospitalization, Other)
  Sender: FDA-Public Use
  Company Number: US-PFIZER INC-2009314344

PATIENT
  Age: 42 Year
  Sex: Female

DRUGS (1)
  1. DILANTIN-125 [Suspect]
     Indication: CONVULSION
     Dosage: 100MG AT MORNING AND 400MG AT BED TIME DAILY
     Route: 048
     Dates: start: 20070319, end: 200704

REACTIONS (1)
  - Stevens-Johnson syndrome [Unknown]
